FAERS Safety Report 10501275 (Version 1)
Quarter: 2014Q4

REPORT INFORMATION
  Report Type: Spontaneous
  Country: US (occurrence: None)
  Receive Date: 20141006
  Receipt Date: 20141006
  Transmission Date: 20150528
  Serious: No
  Sender: FDA-Public Use
  Company Number: None

PATIENT
  Age: 74 Year
  Sex: Male
  Weight: 114 kg

DRUGS (1)
  1. ARBIRATERONE ACETATE [Suspect]
     Active Substance: ABIRATERONE ACETATE
     Dates: end: 20140720

REACTIONS (3)
  - Paraproteinaemia [None]
  - Second primary malignancy [None]
  - Light chain analysis increased [None]

NARRATIVE: CASE EVENT DATE: 20140721
